FAERS Safety Report 15328577 (Version 2)
Quarter: 2018Q3

REPORT INFORMATION
  Report Type: Spontaneous
  Country: KR (occurrence: KR)
  Receive Date: 20180829
  Receipt Date: 20180906
  Transmission Date: 20181010
  Serious: Yes (Other)
  Sender: FDA-Public Use
  Company Number: KR-ROCHE-2176255

PATIENT
  Age: 62 Year
  Sex: Female
  Weight: 71.1 kg

DRUGS (1)
  1. ACTILYSE [Suspect]
     Active Substance: ALTEPLASE
     Indication: PULMONARY EMBOLISM
     Route: 055

REACTIONS (3)
  - Pulmonary oedema [Unknown]
  - Somnolence [Unknown]
  - Haemorrhage [Recovered/Resolved]
